FAERS Safety Report 8860541 (Version 1)
Quarter: 2012Q4

REPORT INFORMATION
  Report Type: 
  Country: JP (occurrence: JP)
  Receive Date: 20121025
  Receipt Date: 20121025
  Transmission Date: 20130627
  Serious: Yes (Hospitalization, Other)
  Sender: FDA-Public Use
  Company Number: JP-009507513-1202USA01321

PATIENT
  Age: 79 Year
  Sex: Female
  Weight: 72 kg

DRUGS (6)
  1. FOSAMAC TABLETS 35MG [Suspect]
     Indication: FEMORAL NECK FRACTURE
     Dosage: 35 mg, qw
     Route: 048
     Dates: start: 20071003, end: 20110606
  2. FOSAMAC TABLETS-5 [Suspect]
     Indication: FEMORAL NECK FRACTURE
     Dosage: 5 mg, qd
     Route: 048
     Dates: start: 200204, end: 20071002
  3. PARIET [Suspect]
     Indication: GASTROOESOPHAGEAL REFLUX DISEASE
     Dosage: 10 mg, qd
     Route: 048
     Dates: start: 20081204
  4. BAYASPIRIN [Concomitant]
     Indication: PROPHYLAXIS
     Dosage: 100 mg, qd
     Route: 048
     Dates: start: 20040518
  5. METLIGINE [Concomitant]
     Indication: HYPOTENSION
     Dosage: 2 mg, bid
     Route: 048
     Dates: start: 20050419
  6. MERISLON [Concomitant]
     Indication: DIZZINESS
     Dosage: 6 mg, tid
     Route: 048
     Dates: start: 20070508

REACTIONS (1)
  - Femur fracture [Recovered/Resolved]
